FAERS Safety Report 10703647 (Version 1)
Quarter: 2015Q1

REPORT INFORMATION
  Report Type: Spontaneous
  Country: US (occurrence: None)
  Receive Date: 20150108
  Receipt Date: 20150108
  Transmission Date: 20150721
  Serious: No
  Sender: FDA-Public Use
  Company Number: PR 2876

PATIENT
  Sex: Female

DRUGS (3)
  1. COSOPT [Suspect]
     Active Substance: DORZOLAMIDE HYDROCHLORIDE\TIMOLOL MALEATE
     Dates: start: 20141219
  2. XALATAN [Concomitant]
     Active Substance: LATANOPROST
  3. NITROGLYCERIN. [Concomitant]
     Active Substance: NITROGLYCERIN

REACTIONS (5)
  - Angina pectoris [None]
  - Asphyxia [None]
  - Product quality issue [None]
  - Liquid product physical issue [None]
  - Product packaging quantity issue [None]

NARRATIVE: CASE EVENT DATE: 20141222
